FAERS Safety Report 25628893 (Version 1)
Quarter: 2025Q3

REPORT INFORMATION
  Report Type: Report from Study
  Country: US (occurrence: US)
  Receive Date: 20250731
  Receipt Date: 20250731
  Transmission Date: 20251021
  Serious: Yes (Hospitalization)
  Sender: MALLINCKRODT
  Company Number: US-MALLINCKRODT-MNK202500354

PATIENT
  Sex: Female

DRUGS (1)
  1. CORTICOTROPIN [Suspect]
     Active Substance: CORTICOTROPIN
     Indication: Rheumatoid arthritis

REACTIONS (10)
  - Hospitalisation [Unknown]
  - Weight decreased [Unknown]
  - Contusion [Not Recovered/Not Resolved]
  - Product after taste [Unknown]
  - Hypertension [Not Recovered/Not Resolved]
  - Blood glucose increased [Not Recovered/Not Resolved]
  - Injection site pain [Not Recovered/Not Resolved]
  - Injection site bruising [Recovering/Resolving]
  - Injection site haemorrhage [Not Recovered/Not Resolved]
  - Drug ineffective [Unknown]
